FAERS Safety Report 9569761 (Version 1)
Quarter: 2013Q3

REPORT INFORMATION
  Report Type: Spontaneous
  Country: US (occurrence: US)
  Receive Date: 20130930
  Receipt Date: 20130930
  Transmission Date: 20140515
  Serious: No
  Sender: FDA-Public Use
  Company Number: US-AMGEN-USASP2013065865

PATIENT
  Age: 47 Year
  Sex: Female
  Weight: 94.33 kg

DRUGS (11)
  1. ENBREL [Suspect]
     Indication: PRODUCT USED FOR UNKNOWN INDICATION
     Dosage: 50 MG, ONCE A WEEK
     Route: 058
  2. CYMBALTA [Concomitant]
     Dosage: 30 MG, UNK
  3. SKELAXIN                           /00611501/ [Concomitant]
     Dosage: 800 MG, UNK
  4. TRILIPIX [Concomitant]
     Dosage: 45 MG, UNK
  5. PREDNISONE [Concomitant]
     Dosage: 1 MG, UNK
  6. METHOTREXATE [Concomitant]
     Dosage: 2.5 MG, UNK
  7. PLAQUENIL                          /00072602/ [Concomitant]
     Dosage: 200 MG, UNK
  8. LYRICA [Concomitant]
     Dosage: 50 MG, UNK
  9. TRAMADOL HCL [Concomitant]
     Dosage: 50 MG, UNK
  10. FOLIC ACID [Concomitant]
     Dosage: 1 MG, UNK
  11. OMEPRAZOLE [Concomitant]
     Dosage: 40 MG, UNK

REACTIONS (1)
  - Therapeutic response decreased [Unknown]
